FAERS Safety Report 7242554-6 (Version None)
Quarter: 2011Q1

REPORT INFORMATION
  Report Type: 
  Country: None (occurrence: None)
  Receive Date: 20110114
  Receipt Date: 20110105
  Transmission Date: 20110831
  Serious: Yes (Hospitalization)
  Sender: FDA-Public Use
  Company Number: 2010EU005659

PATIENT
  Age: 13 Year
  Sex: Male
  Weight: 75 kg

DRUGS (1)
  1. TACROLIMUS [Suspect]
     Indication: DERMATITIS ATOPIC
     Dates: start: 20040615, end: 20080101

REACTIONS (1)
  - LOWER LIMB FRACTURE [None]
